FAERS Safety Report 14266878 (Version 1)
Quarter: 2017Q4

REPORT INFORMATION
  Report Type: Spontaneous
  Country: FR (occurrence: FR)
  Receive Date: 20171211
  Receipt Date: 20171211
  Transmission Date: 20180321
  Serious: Yes (Hospitalization, Other)
  Sender: FDA-Public Use
  Company Number: FR-009507513-1712FRA004212

PATIENT
  Age: 32 Year
  Sex: Male

DRUGS (1)
  1. KEYTRUDA [Suspect]
     Active Substance: PEMBROLIZUMAB
     Indication: ANGIOCENTRIC LYMPHOMA

REACTIONS (3)
  - Septic shock [Not Recovered/Not Resolved]
  - Colitis [Unknown]
  - Off label use [Unknown]
